FAERS Safety Report 10086092 (Version 1)
Quarter: 2014Q2

REPORT INFORMATION
  Report Type: Spontaneous
  Country: GB (occurrence: GB)
  Receive Date: 20140418
  Receipt Date: 20140418
  Transmission Date: 20141212
  Serious: Yes (Other)
  Sender: FDA-Public Use
  Company Number: GB-TEVA-475770ISR

PATIENT
  Age: 68 Year
  Sex: Female
  Weight: 76 kg

DRUGS (11)
  1. NAPROXEN [Suspect]
     Dates: start: 20140328
  2. AMLODIPINE [Concomitant]
     Dates: start: 20140310
  3. AMLODIPINE [Concomitant]
     Dates: start: 20140107, end: 20140204
  4. BENDROFLUMETHIAZIDE [Concomitant]
     Dates: start: 20140107, end: 20140204
  5. BENDROFLUMETHIAZIDE [Concomitant]
     Dates: start: 20140310
  6. CALCIUM CARBONATE [Concomitant]
     Dates: start: 20140203, end: 20140303
  7. CETIRIZINE [Concomitant]
     Dates: start: 20140328
  8. CO-CODAMOL [Concomitant]
     Dates: start: 20140107, end: 20140204
  9. LANSOPRAZOLE [Concomitant]
     Dates: start: 20140328
  10. SIMVASTATIN [Concomitant]
     Dates: start: 20140107, end: 20140204
  11. SIMVASTATIN [Concomitant]
     Dates: start: 20140310

REACTIONS (1)
  - Gastric disorder [Recovering/Resolving]
